FAERS Safety Report 6608768-0 (Version None)
Quarter: 2010Q1

REPORT INFORMATION
  Report Type: 
  Country: None (occurrence: None)
  Receive Date: 20100224
  Receipt Date: 20100224
  Transmission Date: 20100710
  Serious: No
  Sender: FDA-Public Use
  Company Number: None

PATIENT
  Age: 51 Year
  Sex: Male
  Weight: 74.8435 kg

DRUGS (11)
  1. HALOPERIDOL [Suspect]
     Dosage: 10MG PO
     Route: 048
  2. OLANZAPINE [Concomitant]
  3. ENALAPRIL MALEATE [Concomitant]
  4. AMLODIPINE [Concomitant]
  5. LORAZEPAM [Concomitant]
  6. VIT E [Concomitant]
  7. NAPROXEN [Concomitant]
  8. MULTI-VITAMIN [Concomitant]
  9. BENZTROPINE MESYLATE [Concomitant]
  10. DEPAKOTE ER [Concomitant]
  11. HALOPERIDOL [Concomitant]

REACTIONS (2)
  - DROOLING [None]
  - VISION BLURRED [None]
